FAERS Safety Report 4994245-X (Version None)
Quarter: 2006Q2

REPORT INFORMATION
  Report Type: 
  Country: None (occurrence: None)
  Receive Date: 20060503
  Receipt Date: 20060424
  Transmission Date: 20061013
  Serious: Yes (Hospitalization)
  Sender: FDA-Public Use
  Company Number: S06-USA-01615-01

PATIENT
  Age: 37 Year
  Sex: Male

DRUGS (6)
  1. LEXAPRO [Suspect]
     Indication: BIPOLAR DISORDER
     Dosage: 10 MG QHS PO
     Route: 048
     Dates: start: 20060201, end: 20060313
  2. LEXAPRO [Suspect]
     Indication: BIPOLAR DISORDER
     Dosage: 10 MG QHS PO
     Route: 048
     Dates: start: 20060316, end: 20060405
  3. LITHIUM CARBONATE [Concomitant]
  4. TRILEPTAL [Concomitant]
  5. NEXIUM [Concomitant]
  6. TRICOR [Concomitant]

REACTIONS (5)
  - GASTRIC PERFORATION [None]
  - HAEMATEMESIS [None]
  - PYREXIA [None]
  - RETCHING [None]
  - VOMITING [None]
